FAERS Safety Report 5211955-X (Version None)
Quarter: 2007Q1

REPORT INFORMATION
  Report Type: 
  Country: None (occurrence: None)
  Receive Date: 20070116
  Receipt Date: 20070116
  Transmission Date: 20070707
  Serious: No
  Sender: FDA-Public Use
  Company Number: None

PATIENT
  Age: 62 Year
  Sex: Female
  Weight: 113 kg

DRUGS (1)
  1. ACYCLOVIR [Suspect]
     Indication: HERPES ZOSTER OPHTHALMIC
     Dosage: 1180 MG ACYCLOVIR EVERY 8 HOURS IV
     Route: 042
     Dates: start: 20060322, end: 20060926

REACTIONS (6)
  - BLOOD CREATININE INCREASED [None]
  - CEREBRAL HAEMATOMA [None]
  - DELUSION [None]
  - NEPHROPATHY TOXIC [None]
  - NEUROTOXICITY [None]
  - RESTLESSNESS [None]
